FAERS Safety Report 8830051 (Version 6)
Quarter: 2013Q4

REPORT INFORMATION
  Report Type: Spontaneous
  Country: US (occurrence: US)
  Receive Date: 20121008
  Receipt Date: 20131210
  Transmission Date: 20140711
  Serious: Yes (Hospitalization, Other)
  Sender: FDA-Public Use
  Company Number: US-PFIZER INC-2012246333

PATIENT
  Age: 69 Year
  Sex: Female
  Weight: 48.53 kg

DRUGS (5)
  1. LIPITOR [Suspect]
     Indication: BLOOD CHOLESTEROL INCREASED
     Dosage: 10 MG, 1X/DAY
     Route: 048
     Dates: start: 200912
  2. LIPITOR [Suspect]
     Indication: CARDIAC DISORDER
  3. LISINOPRIL [Concomitant]
     Indication: HYPERTENSION
     Dosage: 20 MG, 1X/DAY
  4. TOPROL XL [Concomitant]
     Indication: HYPERTENSION
     Dosage: 25 MG, 1X/DAY
  5. TOPROL XL [Concomitant]
     Dosage: 12.5 MG, 1X/DAY

REACTIONS (7)
  - Abdominal pain upper [Recovered/Resolved]
  - Loss of consciousness [Recovered/Resolved]
  - Pain [Unknown]
  - Thyroid disorder [Unknown]
  - Gastrointestinal motility disorder [Unknown]
  - Weight decreased [Unknown]
  - Gastrointestinal disorder [Unknown]
